FAERS Safety Report 16024492 (Version 3)
Quarter: 2019Q4

REPORT INFORMATION
  Report Type: Report from Study
  Country: US (occurrence: US)
  Receive Date: 20190301
  Receipt Date: 20191003
  Transmission Date: 20200122
  Serious: Yes (Hospitalization, Other)
  Sender: FDA-Public Use
  Company Number: US-ACTELION-A-NJ2019-186166

PATIENT
  Age: 56 Year
  Sex: Male

DRUGS (3)
  1. TYVASO [Concomitant]
     Active Substance: TREPROSTINIL
     Dosage: 9 DF, QID
     Route: 055
     Dates: start: 201812, end: 201902
  2. NINTEDANIB [Concomitant]
     Active Substance: NINTEDANIB
     Dosage: 150 MG, QD
     Route: 048
  3. OPSUMIT [Suspect]
     Active Substance: MACITENTAN
     Indication: PULMONARY ARTERIAL HYPERTENSION
     Dosage: 10 MG, QD
     Route: 048
     Dates: start: 20181220, end: 20190219

REACTIONS (3)
  - Pulmonary hypertension [Recovered/Resolved]
  - Malnutrition [Unknown]
  - Lung transplant [Recovered/Resolved]

NARRATIVE: CASE EVENT DATE: 20181222
